FAERS Safety Report 12315121 (Version 2)
Quarter: 2016Q3

REPORT INFORMATION
  Report Type: Spontaneous
  Country: US (occurrence: US)
  Receive Date: 20160428
  Receipt Date: 20160707
  Transmission Date: 20161109
  Serious: Yes (Other)
  Sender: FDA-Public Use
  Company Number: US-ASTRAZENECA-2016SE42991

PATIENT
  Age: 895 Month
  Sex: Female
  Weight: 73 kg

DRUGS (5)
  1. LETROZOLE. [Suspect]
     Active Substance: LETROZOLE
     Route: 065
  2. EDARBI [Concomitant]
     Active Substance: AZILSARTAN KAMEDOXOMIL
     Indication: BLOOD PRESSURE ABNORMAL
  3. AROMASIN [Suspect]
     Active Substance: EXEMESTANE
     Route: 065
     Dates: start: 20160301, end: 201603
  4. ANASTROZOLE. [Suspect]
     Active Substance: ANASTROZOLE
     Route: 048
  5. AMLODIPINE [Concomitant]
     Active Substance: AMLODIPINE BESYLATE
     Indication: BLOOD PRESSURE ABNORMAL

REACTIONS (14)
  - Weight increased [Recovered/Resolved]
  - Gait disturbance [Recovered/Resolved]
  - Disease recurrence [Unknown]
  - Alopecia [Recovered/Resolved]
  - Confusional state [Unknown]
  - Peripheral swelling [Recovered/Resolved]
  - Visual acuity reduced [Not Recovered/Not Resolved]
  - Back disorder [Not Recovered/Not Resolved]
  - Malaise [Not Recovered/Not Resolved]
  - Depressed mood [Unknown]
  - Joint swelling [Recovered/Resolved]
  - Memory impairment [Unknown]
  - Arthritis [Unknown]
  - Morbid thoughts [Unknown]

NARRATIVE: CASE EVENT DATE: 201603
